FAERS Safety Report 7037994-4 (Version None)
Quarter: 2010Q4

REPORT INFORMATION
  Report Type: 
  Country: None (occurrence: None)
  Receive Date: 20101011
  Receipt Date: 20100930
  Transmission Date: 20110411
  Serious: Yes (Hospitalization, Disabling)
  Sender: FDA-Public Use
  Company Number: CH-SANOFI-AVENTIS-2010SA058957

PATIENT
  Sex: Female

DRUGS (7)
  1. PLAVIX [Suspect]
     Route: 048
     Dates: start: 20100301, end: 20100601
  2. ATORVASTATIN CALCIUM [Suspect]
     Route: 048
     Dates: start: 20100301, end: 20100605
  3. METOPROLOL SUCCINATE [Concomitant]
     Route: 048
     Dates: start: 20100301
  4. LISINOPRIL [Concomitant]
     Route: 048
     Dates: start: 20100301
  5. ASPIRIN [Concomitant]
     Route: 048
     Dates: start: 20100301
  6. AMLODIPINE [Concomitant]
     Indication: ESSENTIAL HYPERTENSION
     Route: 048
     Dates: start: 20100301, end: 20100601
  7. TORASEMIDE [Concomitant]
     Indication: PRODUCT USED FOR UNKNOWN INDICATION
     Route: 048
     Dates: start: 20100301, end: 20100601

REACTIONS (11)
  - AMYOTROPHY [None]
  - BLOOD CREATINE PHOSPHOKINASE INCREASED [None]
  - C-REACTIVE PROTEIN INCREASED [None]
  - HEPATOCELLULAR INJURY [None]
  - LEUKOCYTOSIS [None]
  - LUNG NEOPLASM [None]
  - MUSCULOSKELETAL PAIN [None]
  - OFF LABEL USE [None]
  - OVERDOSE [None]
  - PARESIS [None]
  - POLYMYOSITIS [None]
